FAERS Safety Report 19355439 (Version 1)
Quarter: 2021Q2

REPORT INFORMATION
  Report Type: Spontaneous
  Country: FR (occurrence: FR)
  Receive Date: 20210602
  Receipt Date: 20210602
  Transmission Date: 20210717
  Serious: Yes (Death)
  Sender: FDA-Public Use
  Company Number: FR-AMGEN-FRASP2021082678

PATIENT

DRUGS (3)
  1. ROMIPLOSTIM [Suspect]
     Active Substance: ROMIPLOSTIM
     Indication: APLASIA PURE RED CELL
     Dosage: UNK
     Route: 065
  2. ROMIPLOSTIM [Suspect]
     Active Substance: ROMIPLOSTIM
     Indication: OFF LABEL USE
  3. RITUXIMAB. [Concomitant]
     Active Substance: RITUXIMAB
     Indication: APLASIA PURE RED CELL
     Dosage: UNK

REACTIONS (2)
  - Disease progression [Fatal]
  - Off label use [Unknown]
